FAERS Safety Report 6078719-9 (Version None)
Quarter: 2009Q1

REPORT INFORMATION
  Report Type: 
  Country: None (occurrence: None)
  Receive Date: 20090216
  Receipt Date: 20090204
  Transmission Date: 20090719
  Serious: Yes (Other)
  Sender: FDA-Public Use
  Company Number: GB-AMGEN-US333178

PATIENT
  Sex: Female

DRUGS (1)
  1. ENBREL [Suspect]
     Indication: DRUG USE FOR UNKNOWN INDICATION
     Dosage: 50MG, FREQUENCY UNKNOWN
     Route: 058
     Dates: start: 20050101

REACTIONS (2)
  - CROHN'S DISEASE [None]
  - INJECTION SITE PAIN [None]
